FAERS Safety Report 4438676-5 (Version None)
Quarter: 2004Q3

REPORT INFORMATION
  Report Type: 
  Country: None (occurrence: None)
  Receive Date: 20040830
  Receipt Date: 20040830
  Transmission Date: 20050211
  Serious: Yes (Hospitalization)
  Sender: FDA-Public Use
  Company Number: None

PATIENT
  Sex: Male

DRUGS (1)
  1. TEETH BLEACH PRODUCT OTC [Suspect]

REACTIONS (6)
  - AORTIC VALVE DISEASE [None]
  - BLOOD CULTURE POSITIVE [None]
  - ENDOCARDITIS [None]
  - GINGIVAL PAIN [None]
  - PYREXIA [None]
  - STREPTOCOCCAL INFECTION [None]
